FAERS Safety Report 18706530 (Version 1)
Quarter: 2021Q1

REPORT INFORMATION
  Report Type: Spontaneous
  Country: US (occurrence: US)
  Receive Date: 20210105
  Receipt Date: 20210105
  Transmission Date: 20210419
  Serious: Yes (Life-Threatening, Hospitalization, Other)
  Sender: FDA-Public Use
  Company Number: None

PATIENT
  Age: 74 Year
  Sex: Male
  Weight: 88 kg

DRUGS (1)
  1. METHYLENE BLUE (METHYLENE BLUE 1% INJ) [Suspect]
     Active Substance: METHYLENE BLUE
     Indication: VASCULAR OPERATION
     Dates: start: 20200616, end: 20200616

REACTIONS (7)
  - Agitation [None]
  - Hyperthermia [None]
  - Serotonin syndrome [None]
  - Mental status changes [None]
  - Muscle twitching [None]
  - Muscle rigidity [None]
  - Contrast media reaction [None]

NARRATIVE: CASE EVENT DATE: 20200617
